FAERS Safety Report 5385052-7 (Version None)
Quarter: 2007Q3

REPORT INFORMATION
  Report Type: 
  Country: None (occurrence: None)
  Receive Date: 20070712
  Receipt Date: 20070703
  Transmission Date: 20080115
  Serious: Yes (Other)
  Sender: FDA-Public Use
  Company Number: PHBS2007BE09033

PATIENT
  Age: 48 Year
  Sex: Male
  Weight: 70 kg

DRUGS (7)
  1. ZOMETA [Suspect]
     Indication: OSTEOPOROSIS
     Dosage: 4 MG/MONTH
     Dates: start: 20031219
  2. AREDIA [Suspect]
  3. REDOMEX [Concomitant]
     Dosage: 25 MG, BID
  4. TRAZOLAN [Concomitant]
  5. ASAFLOW [Concomitant]
  6. AUGMENTIN '125' [Concomitant]
     Dosage: UNK, BID
  7. FLAGYL [Concomitant]
     Dosage: UNK, BID

REACTIONS (17)
  - ABSCESS ORAL [None]
  - BACK PAIN [None]
  - BONE OPERATION [None]
  - CHRONIC SINUSITIS [None]
  - EPISTAXIS [None]
  - FACE AND MOUTH X-RAY ABNORMAL [None]
  - GINGIVAL DISORDER [None]
  - HYPERBARIC OXYGEN THERAPY [None]
  - IMPAIRED HEALING [None]
  - INFECTION [None]
  - ORAL DISORDER [None]
  - OSTEOLYSIS [None]
  - OSTEONECROSIS [None]
  - PRIMARY SEQUESTRUM [None]
  - SPINAL FRACTURE [None]
  - TOOTH EXTRACTION [None]
  - WOUND DEBRIDEMENT [None]
